FAERS Safety Report 14425513 (Version 1)
Quarter: 2018Q1

REPORT INFORMATION
  Report Type: Spontaneous
  Country: US (occurrence: US)
  Receive Date: 20180123
  Receipt Date: 20180123
  Transmission Date: 20180509
  Serious: Yes (Hospitalization)
  Sender: FDA-Public Use
  Company Number: US-GBPHLPEH-2018-PEL-003319

PATIENT

DRUGS (2)
  1. NITROUS OXIDE. [Concomitant]
     Active Substance: NITROUS OXIDE
     Indication: INDUCTION OF ANAESTHESIA
     Dosage: UNK
     Route: 065
  2. SEVOFLURANE, USP [Suspect]
     Active Substance: SEVOFLURANE
     Indication: INDUCTION OF ANAESTHESIA
     Dosage: UNK

REACTIONS (11)
  - Pulmonary haemorrhage [Unknown]
  - Hyperthermia malignant [Unknown]
  - Respiratory failure [Unknown]
  - Compartment syndrome [Unknown]
  - Metabolic acidosis [Unknown]
  - Hyperkalaemia [Unknown]
  - Shock [Unknown]
  - Hepatic failure [Recovered/Resolved]
  - Muscle rigidity [Unknown]
  - Disseminated intravascular coagulation [Unknown]
  - Renal failure [Recovered/Resolved]
